FAERS Safety Report 9445134 (Version 2)
Quarter: 2013Q4

REPORT INFORMATION
  Report Type: Spontaneous
  Country: GB (occurrence: GB)
  Receive Date: 20130807
  Receipt Date: 20131114
  Transmission Date: 20140711
  Serious: Yes (Other)
  Sender: FDA-Public Use
  Company Number: GB-WATSON-2013-13766

PATIENT
  Age: 32 Year
  Sex: Female
  Weight: 50 kg

DRUGS (3)
  1. SERTRALINE HYDROCHLORIDE (UNKNOWN) [Suspect]
     Indication: ANXIETY
     Dosage: 50 MG, DAILY, ADDITIONAL INDICATION FOR SERTRALINE-BLUSHING
     Route: 048
     Dates: start: 20120407, end: 20120416
  2. DIANETTE [Concomitant]
     Indication: PRODUCT USED FOR UNKNOWN INDICATION
     Dosage: UNK; LONG TERM
     Route: 065
  3. DIANETTE [Concomitant]
     Dosage: LONG TERM

REACTIONS (6)
  - Psychotic disorder [Recovered/Resolved with Sequelae]
  - Paranoia [Recovered/Resolved with Sequelae]
  - Hallucination, visual [Recovered/Resolved with Sequelae]
  - Fear [Recovered/Resolved with Sequelae]
  - Phobia [Recovered/Resolved with Sequelae]
  - Insomnia [Recovered/Resolved with Sequelae]
